FAERS Safety Report 10032352 (Version 1)
Quarter: 2014Q1

REPORT INFORMATION
  Report Type: Spontaneous
  Country: CH (occurrence: CH)
  Receive Date: 20140324
  Receipt Date: 20140324
  Transmission Date: 20141002
  Serious: No
  Sender: FDA-Public Use
  Company Number: CH-ELI_LILLY_AND_COMPANY-CH201403004274

PATIENT
  Age: 53 Year
  Sex: Female

DRUGS (7)
  1. ZYPREXA VELOTAB [Suspect]
     Indication: PRODUCT USED FOR UNKNOWN INDICATION
     Dosage: 2.5 MG, BID
     Route: 048
     Dates: end: 20140129
  2. DEPONIT [Suspect]
     Indication: CORONARY ARTERY DISEASE
     Dosage: 1 DF, QD
     Route: 062
     Dates: end: 20140129
  3. MARCOUMAR [Concomitant]
     Dosage: 1 DF, UNKNOWN
     Route: 048
  4. SIMVASTATIN [Concomitant]
     Dosage: 20 MG, EACH MORNING
  5. ASPIRIN [Concomitant]
     Dosage: 100 MG, EACH MORNING
     Route: 048
  6. CALCIUM [Concomitant]
     Dosage: UNK
     Dates: end: 20140129
  7. ATENIL [Concomitant]
     Dosage: 12.5 MG, EACH MORNING
     Route: 048

REACTIONS (4)
  - Methaemoglobinaemia [Recovering/Resolving]
  - C-reactive protein increased [Unknown]
  - Thrombocytopenia [Unknown]
  - Pyrexia [Unknown]
